FAERS Safety Report 9472946 (Version 1)
Quarter: 2013Q3

REPORT INFORMATION
  Report Type: Spontaneous
  Country: US (occurrence: US)
  Receive Date: 20130823
  Receipt Date: 20130823
  Transmission Date: 20140515
  Serious: No
  Sender: FDA-Public Use
  Company Number: US-BRISTOL-MYERS SQUIBB COMPANY-17254111

PATIENT
  Sex: Female

DRUGS (3)
  1. SPRYCEL (CML) TABS 100 MG [Suspect]
     Dosage: ABOUT 6 MONTHS.
  2. PRAVASTATIN MR [Concomitant]
  3. VITAMINS [Concomitant]

REACTIONS (1)
  - Dizziness [Unknown]
